FAERS Safety Report 7503482-1 (Version None)
Quarter: 2011Q2

REPORT INFORMATION
  Report Type: 
  Country: None (occurrence: None)
  Receive Date: 20110525
  Receipt Date: 20110519
  Transmission Date: 20111010
  Serious: Yes (Life-Threatening, Hospitalization)
  Sender: FDA-Public Use
  Company Number: DE-ROCHE-769804

PATIENT
  Sex: Male
  Weight: 76 kg

DRUGS (5)
  1. INSULIN [Concomitant]
     Indication: DIABETES MELLITUS
     Route: 058
  2. TRAMADOL HYDROCHLORIDE [Concomitant]
     Route: 048
  3. DICLOFENAC SODIUM [Concomitant]
     Route: 048
  4. PEGINTERFERON ALFA-2A [Suspect]
     Route: 058
     Dates: start: 20101008
  5. RIBAVIRIN [Concomitant]
     Indication: HEPATITIS C
     Route: 065

REACTIONS (1)
  - ANGIODYSPLASIA [None]
